FAERS Safety Report 10937086 (Version 2)
Quarter: 2015Q2

REPORT INFORMATION
  Report Type: Spontaneous
  Country: US (occurrence: US)
  Receive Date: 20150321
  Receipt Date: 20150525
  Transmission Date: 20150821
  Serious: No
  Sender: FDA-Public Use
  Company Number: US-JNJFOC-20140109320

PATIENT
  Age: 33 Year
  Sex: Female
  Weight: 78.93 kg

DRUGS (2)
  1. GENERIC TOPIRAMATE [Suspect]
     Active Substance: TOPIRAMATE
     Indication: MIGRAINE
     Route: 065
  2. TOPAMAX [Suspect]
     Active Substance: TOPIRAMATE
     Indication: MIGRAINE
     Dosage: AT BED TIME
     Route: 048
     Dates: start: 2010

REACTIONS (3)
  - Muscular weakness [Recovered/Resolved]
  - Nonspecific reaction [Recovered/Resolved]
  - Drug dose omission [Not Recovered/Not Resolved]

NARRATIVE: CASE EVENT DATE: 201309
